FAERS Safety Report 17966077 (Version 1)
Quarter: 2020Q2

REPORT INFORMATION
  Report Type: Report from Study
  Country: CH (occurrence: CH)
  Receive Date: 20200630
  Receipt Date: 20200630
  Transmission Date: 20200714
  Serious: Yes (Other)
  Sender: FDA-Public Use
  Company Number: CH-INCYTE CORPORATION-2018IN011222

PATIENT

DRUGS (28)
  1. TRIAMCORT [TRIAMCINOLONE] [Concomitant]
     Indication: OSTEOARTHRITIS
  2. PREDNISON [Concomitant]
     Active Substance: PREDNISONE
     Dosage: 08 UNK, UNK
     Route: 065
     Dates: start: 20181111, end: 20181210
  3. PREDNISON [Concomitant]
     Active Substance: PREDNISONE
     Dosage: 30 UNK
     Route: 065
     Dates: start: 20180712, end: 20180720
  4. CALCIMAGON [CALCIUM] [Concomitant]
     Indication: HYPOCALCAEMIA
     Dosage: 5 OT, UNK
     Route: 065
  5. SOLARAZE [Concomitant]
     Active Substance: DICLOFENAC SODIUM
     Indication: ACTINIC KERATOSIS
     Dosage: UNK UKN, UNK
     Route: 065
     Dates: start: 20180903, end: 2018
  6. JAKAVI [Suspect]
     Active Substance: RUXOLITINIB
     Indication: PRODUCT USED FOR UNKNOWN INDICATION
     Dosage: 20 OT, UNK
     Route: 065
     Dates: start: 20180711
  7. PEGASYS [Concomitant]
     Active Substance: PEGINTERFERON ALFA-2A
     Indication: PRODUCT USED FOR UNKNOWN INDICATION
     Route: 065
  8. TRIAMCORT [TRIAMCINOLONE] [Concomitant]
     Indication: MYALGIA
     Dosage: 40 OT, UNK
     Route: 065
     Dates: start: 20180622, end: 20180723
  9. PREDNISON [Concomitant]
     Active Substance: PREDNISONE
     Indication: MYALGIA
     Dosage: 20 OT, UNK
     Route: 065
     Dates: start: 20180626, end: 20180702
  10. PREDNISON [Concomitant]
     Active Substance: PREDNISONE
     Dosage: 40 OT, UNK
     Route: 065
     Dates: start: 20180704, end: 20180711
  11. BACTRIM [Concomitant]
     Active Substance: SULFAMETHOXAZOLE\TRIMETHOPRIM
     Indication: PROPHYLAXIS
     Dosage: 960 OT, UNK
     Route: 065
     Dates: end: 201808
  12. VIMOVO [Concomitant]
     Active Substance: ESOMEPRAZOLE MAGNESIUM\NAPROXEN
     Indication: MYALGIA
     Dosage: 1040 OT, UNK
     Route: 065
     Dates: start: 20180606, end: 20180616
  13. PREDNISON [Concomitant]
     Active Substance: PREDNISONE
     Dosage: 15 UNK
     Route: 065
     Dates: start: 20180817, end: 20180830
  14. PREDNISON [Concomitant]
     Active Substance: PREDNISONE
     Dosage: 17.5 OT, UNK
     Route: 065
     Dates: start: 20180803, end: 20180816
  15. PREDNISON [Concomitant]
     Active Substance: PREDNISONE
     Dosage: 20 UNK
     Route: 065
     Dates: start: 20180721, end: 20180802
  16. PREDNISON [Concomitant]
     Active Substance: PREDNISONE
     Dosage: 2 UNK
     Route: 065
     Dates: start: 20190508, end: 201906
  17. PREDNISON [Concomitant]
     Active Substance: PREDNISONE
     Dosage: 3 UKN, UNK
     Route: 065
     Dates: start: 20190408, end: 20190507
  18. PREDNISON [Concomitant]
     Active Substance: PREDNISONE
     Dosage: 10 UNK
     Route: 065
     Dates: start: 20180912, end: 201809
  19. PANTOPRAZOL [Concomitant]
     Active Substance: PANTOPRAZOLE SODIUM
     Indication: PROPHYLAXIS
     Dosage: 20 OT, UNK
     Route: 065
     Dates: start: 20180625
  20. DAFALGAN [Concomitant]
     Active Substance: ACETAMINOPHEN
     Indication: MYALGIA
     Dosage: 4 OT, UNK
     Route: 065
     Dates: start: 20180625
  21. TRIAMCORT [TRIAMCINOLONE] [Concomitant]
     Indication: OSTEOARTHRITIS
  22. TRIAMCORT [TRIAMCINOLONE] [Concomitant]
     Indication: MYALGIA
  23. PREDNISON [Concomitant]
     Active Substance: PREDNISONE
     Dosage: 7 OT, UNK
     Route: 065
     Dates: start: 20181211, end: 201901
  24. PREDNISON [Concomitant]
     Active Substance: PREDNISONE
     Dosage: 5 UKN, UNK
     Route: 065
     Dates: start: 20190208, end: 20190307
  25. PREDNISON [Concomitant]
     Active Substance: PREDNISONE
     Dosage: 9 UNK
     Route: 065
     Dates: start: 201809, end: 20181110
  26. ASPIRINE [Concomitant]
     Active Substance: ASPIRIN
     Indication: POLYCYTHAEMIA VERA
     Dosage: 100 OT, UNK
     Route: 065
     Dates: start: 200811
  27. PREDNISON [Concomitant]
     Active Substance: PREDNISONE
     Dosage: 4 UNK, UNK
     Route: 065
     Dates: start: 20190308, end: 20190407
  28. PREDNISON [Concomitant]
     Active Substance: PREDNISONE
     Dosage: 12.5 UNK
     Route: 065
     Dates: start: 20180831, end: 20180911

REACTIONS (8)
  - Insomnia [Not Recovered/Not Resolved]
  - Paronychia [Recovered/Resolved]
  - Hypertension [Not Recovered/Not Resolved]
  - Chronic kidney disease [Not Recovered/Not Resolved]
  - Hyperkeratosis [Recovered/Resolved]
  - Spider naevus [Recovered/Resolved]
  - Nocturia [Recovered/Resolved]
  - Epicondylitis [Not Recovered/Not Resolved]

NARRATIVE: CASE EVENT DATE: 20180720
